FAERS Safety Report 5051224-4 (Version None)
Quarter: 2006Q2

REPORT INFORMATION
  Report Type: 
  Country: None (occurrence: None)
  Receive Date: 20060614
  Receipt Date: 20060303
  Transmission Date: 20061013
  Serious: Yes (Other)
  Sender: FDA-Public Use
  Company Number: 439216

PATIENT
  Sex: Female

DRUGS (3)
  1. BONIVA [Suspect]
     Indication: DRUG USE FOR UNKNOWN INDICATION
     Dosage: ORAL
     Route: 048
  2. BENADRYL [Concomitant]
  3. (ACRIVASTINE/AMMONIUM CHLORIDE/CAMPHOR/DIPHENHYDRAMINE HYDROCHLORIDE/M [Concomitant]

REACTIONS (1)
  - PARAESTHESIA [None]
